FAERS Safety Report 23400079 (Version 4)
Quarter: 2024Q2

REPORT INFORMATION
  Report Type: Spontaneous
  Country: US (occurrence: US)
  Receive Date: 20240114
  Receipt Date: 20240415
  Transmission Date: 20240715
  Serious: No
  Sender: FDA-Public Use
  Company Number: US-SANOFI-01894867

PATIENT
  Age: 87 Year
  Sex: Female

DRUGS (1)
  1. CEREZYME [Suspect]
     Active Substance: IMIGLUCERASE
     Dosage: LOW DOSE INTERMITTENTLY/OCCASIONALLY
     Route: 065

REACTIONS (1)
  - No adverse event [Unknown]
